FAERS Safety Report 4646459-6 (Version None)
Quarter: 2005Q2

REPORT INFORMATION
  Report Type: 
  Country: None (occurrence: None)
  Receive Date: 20050427
  Receipt Date: 20040322
  Transmission Date: 20051028
  Serious: No
  Sender: FDA-Public Use
  Company Number: US-GLAXOSMITHKLINE-A0503836A

PATIENT
  Sex: Female

DRUGS (12)
  1. FLOVENT [Suspect]
     Dosage: 2PUFF TWICE PER DAY
     Route: 055
     Dates: start: 20040201
  2. ALBUTEROL [Concomitant]
  3. COMBIVENT [Concomitant]
  4. ASPIRIN [Concomitant]
  5. COREG [Concomitant]
  6. PLAVIX [Concomitant]
  7. COLACE [Concomitant]
  8. LEXAPRO [Concomitant]
  9. PROVIGIL [Concomitant]
  10. PROTONIX [Concomitant]
  11. ACTOS [Concomitant]
  12. LASIX [Concomitant]

REACTIONS (1)
  - DYSPNOEA [None]
